FAERS Safety Report 10243542 (Version 2)
Quarter: 2014Q2

REPORT INFORMATION
  Report Type: Not Available
  Country: US (occurrence: US)
  Receive Date: 20140618
  Receipt Date: 20140618
  Transmission Date: 20141212
  Serious: No
  Sender: FDA-Public Use
  Company Number: US-LUPIN PHARMACEUTICALS INC.-E2B_00002000

PATIENT
  Age: 60 Year
  Sex: Female
  Weight: 136.2 kg

DRUGS (2)
  1. LEVETIRACETAM TABLETS USP 500MG [Suspect]
     Indication: CONVULSION
     Dates: start: 20140409
  2. ASPIRIN [Concomitant]
     Indication: PRODUCT USED FOR UNKNOWN INDICATION

REACTIONS (4)
  - Hypotension [Not Recovered/Not Resolved]
  - Anger [Not Recovered/Not Resolved]
  - Somnolence [Not Recovered/Not Resolved]
  - Vertigo [Not Recovered/Not Resolved]
